APPROVED DRUG PRODUCT: TESTOSTERONE
Active Ingredient: TESTOSTERONE
Strength: 1.62% (40.5MG/2.5GM PACKET)
Dosage Form/Route: GEL;TRANSDERMAL
Application: A205781 | Product #002 | TE Code: AB2
Applicant: PADAGIS ISRAEL PHARMACEUTICALS LTD
Approved: Jul 12, 2017 | RLD: No | RS: Yes | Type: RX